FAERS Safety Report 9781180 (Version 1)
Quarter: 2013Q4

REPORT INFORMATION
  Report Type: Spontaneous
  Country: US (occurrence: None)
  Receive Date: 20131223
  Receipt Date: 20131223
  Transmission Date: 20140711
  Serious: Yes (Disabling)
  Sender: FDA-Public Use
  Company Number: None

PATIENT
  Age: 22 Year
  Sex: Female
  Weight: 99.79 kg

DRUGS (1)
  1. ENOXAPARIN [Suspect]
     Indication: ANTICOAGULANT THERAPY
     Dosage: ONCE DAILY APPLIED TO SURFACE, USUALLY THE SKIN
     Dates: start: 20131001, end: 20131222

REACTIONS (4)
  - Fall [None]
  - Loss of consciousness [None]
  - Feeling abnormal [None]
  - Condition aggravated [None]
